FAERS Safety Report 4753419-3 (Version None)
Quarter: 2005Q3

REPORT INFORMATION
  Report Type: 
  Country: None (occurrence: None)
  Receive Date: 20050824
  Receipt Date: 20050811
  Transmission Date: 20060218
  Serious: Yes (Other)
  Sender: FDA-Public Use
  Company Number: LTI2005A00199

PATIENT
  Age: 50 Year
  Sex: Male

DRUGS (7)
  1. ACTOS [Suspect]
     Indication: DIABETES MELLITUS NON-INSULIN-DEPENDENT
     Dosage: 30 MG (30 MG, 1 IN 1 D) ORAL
     Route: 048
     Dates: start: 20050401, end: 20050729
  2. GLUCOPHAGE [Concomitant]
  3. DIAMICRON (GLICLAZIDE) [Concomitant]
  4. INSULINE (INSULIN HUMAN) [Concomitant]
  5. ASPEGIC 1000 [Concomitant]
  6. ATORVASTATIN CALCIUM [Concomitant]
  7. PRINZIDE [Concomitant]

REACTIONS (2)
  - CYTOLYTIC HEPATITIS [None]
  - WEIGHT INCREASED [None]
